FAERS Safety Report 10021341 (Version 1)
Quarter: 2014Q1

REPORT INFORMATION
  Report Type: Spontaneous
  Country: GT (occurrence: GT)
  Receive Date: 20140319
  Receipt Date: 20140319
  Transmission Date: 20141002
  Serious: Yes (Hospitalization)
  Sender: FDA-Public Use
  Company Number: GT-CELGENEUS-069-50794-14030911

PATIENT
  Age: 70 Year
  Sex: Male

DRUGS (5)
  1. VIDAZA [Suspect]
     Indication: PRODUCT USED FOR UNKNOWN INDICATION
     Route: 058
     Dates: start: 20140228, end: 20140303
  2. ALLOPURINOL [Concomitant]
     Indication: HYPERURICAEMIA
     Dosage: 300 MILLIGRAM
     Route: 065
     Dates: start: 20140228
  3. CIPROFLOXACIN [Concomitant]
     Indication: INFECTION
     Dosage: 1000 MILLIGRAM
     Route: 065
     Dates: start: 20140228
  4. PARACETAMOL [Concomitant]
     Indication: PYREXIA
     Dosage: 2 GRAM
     Route: 065
     Dates: start: 20140228
  5. ONDANSETRON [Concomitant]
     Indication: NAUSEA
     Route: 041
     Dates: start: 20140228

REACTIONS (3)
  - Tachycardia [Recovered/Resolved]
  - Hypotension [Recovered/Resolved]
  - Pyrexia [Recovered/Resolved]
